FAERS Safety Report 19073079 (Version 2)
Quarter: 2021Q2

REPORT INFORMATION
  Report Type: Report from Study
  Country: None (occurrence: DE)
  Receive Date: 20210330
  Receipt Date: 20210407
  Transmission Date: 20210717
  Serious: Yes (Other)
  Sender: FDA-Public Use
  Company Number: DE-ABBVIE-21K-062-3832614-00

PATIENT
  Age: 49 Year
  Sex: Female
  Weight: 50 kg

DRUGS (2)
  1. MAVIRET [Suspect]
     Active Substance: GLECAPREVIR\PIBRENTASVIR
     Indication: CHRONIC HEPATITIS C
     Dosage: 100 MG GLECAPREVIR/40 MG PIBRENTASVIR TABLETS, 3 TABLETS ONCE DAILY
     Route: 048
     Dates: start: 20200512, end: 20200805
  2. AMLODIPIN [Concomitant]
     Active Substance: AMLODIPINE BESYLATE
     Indication: CARDIOVASCULAR DISORDER

REACTIONS (3)
  - Weight decreased [Recovering/Resolving]
  - Decreased appetite [Unknown]
  - Anxiety disorder [Unknown]
